FAERS Safety Report 12170507 (Version 1)
Quarter: 2016Q1

REPORT INFORMATION
  Report Type: Spontaneous
  Country: US (occurrence: US)
  Receive Date: 20160311
  Receipt Date: 20160311
  Transmission Date: 20160526
  Serious: Yes (Other)
  Sender: FDA-Public Use
  Company Number: US-PFIZER INC-2016122078

PATIENT
  Age: 60 Year
  Sex: Female
  Weight: 102 kg

DRUGS (15)
  1. NORCO [Concomitant]
     Active Substance: ACETAMINOPHEN\HYDROCODONE BITARTRATE
     Indication: INTERVERTEBRAL DISC PROTRUSION
     Dosage: 5/325MG, TWO EVERY SIX HOURS
  2. LYRICA [Suspect]
     Active Substance: PREGABALIN
     Indication: NEURALGIA
     Dosage: 150 MG, 4X/DAY
  3. CLOPIDOGREL [Concomitant]
     Active Substance: CLOPIDOGREL BISULFATE
     Indication: BLOOD DISORDER
     Dosage: 75 MG, 1X/DAY
     Dates: start: 2013
  4. HCTZ [Concomitant]
     Active Substance: HYDROCHLOROTHIAZIDE
     Indication: DIURETIC THERAPY
     Dosage: 25 MG, 1X/DAY
     Dates: start: 2013
  5. VALIUM [Concomitant]
     Active Substance: DIAZEPAM
     Indication: CLONUS
     Dosage: .5 MG, AS NEEDED, SPLITS 10 MG
     Dates: start: 2009
  6. VITAMIN D3 [Concomitant]
     Active Substance: CHOLECALCIFEROL
     Indication: BONE DENSITY ABNORMAL
     Dosage: 1000 IU, 2X/DAY
  7. TYSABRI [Concomitant]
     Active Substance: NATALIZUMAB
     Indication: MULTIPLE SCLEROSIS
     Dosage: 30 MGIN 300 ML, EVERY 28 DAYS
     Route: 042
     Dates: start: 2008
  8. LISINOPRIL. [Concomitant]
     Active Substance: LISINOPRIL
     Indication: HYPERTENSION
     Dosage: 40 MG, 1X/DAY
  9. LYRICA [Suspect]
     Active Substance: PREGABALIN
     Indication: NEUROPATHY PERIPHERAL
     Dosage: 75 MG, 4X/DAY
  10. BUPROPION SR [Concomitant]
     Active Substance: BUPROPION
     Indication: DEPRESSION
     Dosage: 150 MG, 2X/DAY
  11. METOPROLOL TARTRATE. [Concomitant]
     Active Substance: METOPROLOL TARTRATE
     Indication: HYPERTENSION
     Dosage: 50 MG, 2X/DAY
     Dates: start: 20121231
  12. NORCO [Concomitant]
     Active Substance: ACETAMINOPHEN\HYDROCODONE BITARTRATE
     Indication: MULTIPLE SCLEROSIS
  13. METOPROLOL TARTRATE. [Concomitant]
     Active Substance: METOPROLOL TARTRATE
     Indication: MYOCARDIAL INFARCTION
  14. VALIUM [Concomitant]
     Active Substance: DIAZEPAM
     Indication: ANXIETY
  15. ASPIRIN. [Concomitant]
     Active Substance: ASPIRIN
     Indication: ANTICOAGULANT THERAPY
     Dosage: 81 MG, 1X/DAY
     Dates: start: 2013

REACTIONS (15)
  - Hot flush [Unknown]
  - Drug effect incomplete [Unknown]
  - Withdrawal syndrome [Unknown]
  - Irritability [Recovered/Resolved]
  - Skin warm [Unknown]
  - Panic reaction [Recovering/Resolving]
  - Intentional product use issue [Unknown]
  - Pain [Unknown]
  - Myalgia [Not Recovered/Not Resolved]
  - Nausea [Unknown]
  - Chills [Not Recovered/Not Resolved]
  - Insomnia [Not Recovered/Not Resolved]
  - Ankle fracture [Unknown]
  - Hyperhidrosis [Not Recovered/Not Resolved]
  - Anxiety [Recovering/Resolving]

NARRATIVE: CASE EVENT DATE: 201503
